FAERS Safety Report 13564398 (Version 1)
Quarter: 2017Q2

REPORT INFORMATION
  Report Type: Spontaneous
  Country: US (occurrence: US)
  Receive Date: 20170519
  Receipt Date: 20170519
  Transmission Date: 20170830
  Serious: Yes (Hospitalization)
  Sender: FDA-Public Use
  Company Number: US-PFIZER INC-2017213250

PATIENT
  Sex: Male

DRUGS (1)
  1. XELJANZ XR [Suspect]
     Active Substance: TOFACITINIB CITRATE
     Indication: RHEUMATOID ARTHRITIS
     Dosage: 11 MG, UNK

REACTIONS (6)
  - Paraesthesia [Unknown]
  - Liver function test increased [Recovered/Resolved]
  - Sepsis [Unknown]
  - Peripheral swelling [Unknown]
  - Myalgia [Unknown]
  - False positive investigation result [Unknown]

NARRATIVE: CASE EVENT DATE: 20161211
